FAERS Safety Report 17519546 (Version 1)
Quarter: 2020Q1

REPORT INFORMATION
  Report Type: Spontaneous
  Country: US (occurrence: US)
  Receive Date: 20200228
  Receipt Date: 20200228
  Transmission Date: 20200409
  Serious: Yes (Other)
  Sender: FDA-Public Use
  Company Number: None

PATIENT
  Age: 55 Year
  Sex: Female

DRUGS (25)
  1. AMBRISENTAN 10MG TABLETS 30/BO: 10MG [Suspect]
     Active Substance: AMBRISENTAN
     Indication: PULMONARY ARTERIAL HYPERTENSION
     Route: 048
     Dates: start: 201608
  2. DEXAMETHASONE. [Concomitant]
     Active Substance: DEXAMETHASONE
  3. SPIRIVA [Concomitant]
     Active Substance: TIOTROPIUM BROMIDE MONOHYDRATE
  4. PREDNISONE. [Concomitant]
     Active Substance: PREDNISONE
  5. TORSEMIDE. [Concomitant]
     Active Substance: TORSEMIDE
  6. ADVAIR DISKUS [Concomitant]
     Active Substance: FLUTICASONE PROPIONATE\SALMETEROL XINAFOATE
  7. ALBUTEROL NEB SOLN [Concomitant]
  8. AMBRISENTAN 10MG TABLETS 30/BO: 10MG [Suspect]
     Active Substance: AMBRISENTAN
     Indication: CONNECTIVE TISSUE DISORDER
     Route: 048
     Dates: start: 201608
  9. LORAZEPAM. [Concomitant]
     Active Substance: LORAZEPAM
  10. POTASSIUM CHLROIDE [Concomitant]
  11. VENLAFAXINE [Concomitant]
     Active Substance: VENLAFAXINE HYDROCHLORIDE
  12. TACROLIMUS TOP OINT [Concomitant]
  13. CETIRIZINE [Suspect]
     Active Substance: CETIRIZINE HYDROCHLORIDE
  14. LOSARTAN. [Concomitant]
     Active Substance: LOSARTAN
  15. PENTIN [Concomitant]
  16. RESPIMAT [Concomitant]
  17. MS CONTIN [Concomitant]
     Active Substance: MORPHINE SULFATE
  18. ACYCLOVIR. [Concomitant]
     Active Substance: ACYCLOVIR
  19. METOPROLOL. [Concomitant]
     Active Substance: METOPROLOL
  20. SPIRONOLACTONE. [Concomitant]
     Active Substance: SPIRONOLACTONE
  21. WARFARIN [Concomitant]
     Active Substance: WARFARIN
  22. NORCO [Concomitant]
     Active Substance: ACETAMINOPHEN\HYDROCODONE BITARTRATE
  23. ZOLPIDEM [Concomitant]
     Active Substance: ZOLPIDEM TARTRATE
  24. TYLENOL [Concomitant]
     Active Substance: ACETAMINOPHEN
  25. ROXANAL [Concomitant]

REACTIONS (10)
  - Dizziness postural [None]
  - Neck pain [None]
  - Musculoskeletal pain [None]
  - Haematoma [None]
  - Posture abnormal [None]
  - Headache [None]
  - Vision blurred [None]
  - Arthralgia [None]
  - Dizziness [None]
  - Fall [None]

NARRATIVE: CASE EVENT DATE: 20200218
